FAERS Safety Report 9157949 (Version 2)
Quarter: 2013Q1

REPORT INFORMATION
  Report Type: Spontaneous
  Country: JP (occurrence: JP)
  Receive Date: 20130312
  Receipt Date: 20130318
  Transmission Date: 20140127
  Serious: Yes (Other)
  Sender: FDA-Public Use
  Company Number: JP-ROCHE-1194750

PATIENT
  Sex: Female

DRUGS (4)
  1. ACTEMRA [Suspect]
     Indication: JUVENILE IDIOPATHIC ARTHRITIS
     Dosage: DOSAGE IS UNCERTAIN.
     Route: 041
     Dates: start: 201211
  2. ACTEMRA [Suspect]
     Indication: OFF LABEL USE
  3. FUNGUARD [Suspect]
     Indication: JUVENILE IDIOPATHIC ARTHRITIS
     Dosage: DOSAGE IS UNCERTAIN.
     Route: 065
  4. ZOSYN [Suspect]
     Indication: JUVENILE IDIOPATHIC ARTHRITIS
     Dosage: DOSAGE IS UNCERTAIN.
     Route: 065

REACTIONS (2)
  - Pneumonia [Unknown]
  - Drug-induced liver injury [Unknown]
